FAERS Safety Report 5383102-5 (Version None)
Quarter: 2007Q2

REPORT INFORMATION
  Report Type: 
  Country: None (occurrence: None)
  Receive Date: 20070629
  Receipt Date: 20061031
  Transmission Date: 20071010
  Serious: Yes (Other)
  Sender: FDA-Public Use
  Company Number: US200611000071

PATIENT
  Sex: Female

DRUGS (3)
  1. HUMALOG [Suspect]
     Indication: DIABETES MELLITUS
     Dosage: 9 U, EACH MORNING; 10 U, DAILY (1/D); 12 U, EACH EVENING
     Dates: start: 20000101
  2. HUMALOG [Suspect]
     Indication: DIABETES MELLITUS
     Dosage: 9 U, EACH MORNING; 10 U, DAILY (1/D); 12 U, EACH EVENING
     Dates: start: 20000101
  3. HUMALOG [Suspect]
     Indication: DIABETES MELLITUS
     Dosage: 9 U, EACH MORNING; 10 U, DAILY (1/D); 12 U, EACH EVENING
     Dates: start: 20000101

REACTIONS (2)
  - DIABETIC COMA [None]
  - GLYCOSYLATED HAEMOGLOBIN INCREASED [None]
